FAERS Safety Report 5830772-0 (Version None)
Quarter: 2008Q3

REPORT INFORMATION
  Report Type: 
  Country: None (occurrence: None)
  Receive Date: 20080801
  Receipt Date: 20071115
  Transmission Date: 20090109
  Serious: Yes (Hospitalization)
  Sender: FDA-Public Use
  Company Number: US-BRISTOL-MYERS SQUIBB COMPANY-13984349

PATIENT
  Age: 42 Year
  Sex: Male

DRUGS (6)
  1. COUMADIN [Suspect]
     Indication: PULMONARY EMBOLISM
     Route: 065
  2. THALOMID [Suspect]
     Indication: BRAIN NEOPLASM
     Dosage: THALIDOMIDE CAPSULES 300 MG (50 MG AND 100MG CAPSULE STRENGTH)ORALLY DAILY BEGINNING ON 16-JUL-2006.
     Route: 048
     Dates: start: 20060619
  3. TEMODAR [Concomitant]
     Indication: BRAIN NEOPLASM
     Route: 065
  4. ZOFRAN [Concomitant]
     Indication: BRAIN NEOPLASM
     Route: 065
  5. DECADRON [Concomitant]
     Indication: BRAIN OEDEMA
     Route: 065
  6. LAMICTAL [Concomitant]
     Indication: CONVULSION
     Route: 065

REACTIONS (2)
  - INTERNATIONAL NORMALISED RATIO INCREASED [None]
  - RECTAL HAEMORRHAGE [None]
